FAERS Safety Report 22366746 (Version 2)
Quarter: 2023Q2

REPORT INFORMATION
  Report Type: Spontaneous
  Country: JP (occurrence: JP)
  Receive Date: 20230525
  Receipt Date: 20230601
  Transmission Date: 20230721
  Serious: Yes (Death)
  Sender: FDA-Public Use
  Company Number: JP-ELI_LILLY_AND_COMPANY-JP202305012219

PATIENT
  Age: 50 Year
  Sex: Female

DRUGS (2)
  1. GEMCITABINE HYDROCHLORIDE [Suspect]
     Active Substance: GEMCITABINE HYDROCHLORIDE
     Indication: Bile duct cancer
     Dosage: 1000 MG/M2, OTHER
     Route: 041
     Dates: start: 20230419
  2. CISPLATIN [Suspect]
     Active Substance: CISPLATIN
     Indication: Bile duct cancer
     Dosage: UNK
     Route: 041
     Dates: start: 20230419

REACTIONS (2)
  - Platelet count decreased [Fatal]
  - Neutrophil count decreased [Fatal]

NARRATIVE: CASE EVENT DATE: 20230422
